FAERS Safety Report 4567197-4 (Version None)
Quarter: 2005Q1

REPORT INFORMATION
  Report Type: 
  Country: None (occurrence: None)
  Receive Date: 20050201
  Receipt Date: 20050105
  Transmission Date: 20050727
  Serious: Yes (Hospitalization)
  Sender: FDA-Public Use
  Company Number: PL-GLAXOSMITHKLINE-B0363617A

PATIENT
  Age: 51 Year
  Sex: Male
  Weight: 77 kg

DRUGS (3)
  1. ROPINIROLE [Suspect]
     Indication: PARKINSON'S DISEASE
     Dates: start: 20041204
  2. SULFASALAZINE [Suspect]
     Indication: ARTHRITIS
  3. ENARENAL [Concomitant]

REACTIONS (1)
  - CHEST PAIN [None]
